FAERS Safety Report 20153966 (Version 2)
Quarter: 2021Q4

REPORT INFORMATION
  Report Type: Spontaneous
  Country: CN (occurrence: None)
  Receive Date: 20211207
  Receipt Date: 20211215
  Transmission Date: 20220304
  Serious: Yes (Hospitalization)
  Sender: FDA-Public Use
  Company Number: 2021A853355

PATIENT
  Age: 71 Year
  Sex: Female
  Weight: 60 kg

DRUGS (1)
  1. IMFINZI [Suspect]
     Active Substance: DURVALUMAB
     Indication: Non-small cell lung cancer
     Dosage: 620MG / CYCLE; DAILY DOSE: 500MG + 120MG620.0MG EVERY CYCLE
     Route: 041
     Dates: start: 20210728, end: 20210811

REACTIONS (1)
  - Immune-mediated lung disease [Recovering/Resolving]
